FAERS Safety Report 24442415 (Version 2)
Quarter: 2024Q4

REPORT INFORMATION
  Report Type: Report from Study
  Country: US (occurrence: US)
  Receive Date: 20241016
  Receipt Date: 20241017
  Transmission Date: 20250114
  Serious: No
  Sender: ROCHE
  Company Number: US-ROCHE-3538932

PATIENT
  Age: 26 Year
  Sex: Male

DRUGS (4)
  1. HEMLIBRA [Suspect]
     Active Substance: EMICIZUMAB-KXWH
     Indication: Factor VIII deficiency
     Dosage: 15MG/0.5MG FROM 30MG VIAL INTO 3 DIFFERENT SITE UNDER THE SKIN
     Route: 058
  2. HEMLIBRA [Suspect]
     Active Substance: EMICIZUMAB-KXWH
     Indication: Urethral caruncle
  3. AMICAR [Concomitant]
     Active Substance: AMINOCAPROIC ACID
     Dosage: 500 MG TABLET
  4. CLARITIN [Concomitant]
     Active Substance: LORATADINE
     Dosage: OTC

REACTIONS (2)
  - Off label use [Unknown]
  - No adverse event [Unknown]
